FAERS Safety Report 5325789-9 (Version None)
Quarter: 2007Q2

REPORT INFORMATION
  Report Type: 
  Country: None (occurrence: None)
  Receive Date: 20070510
  Receipt Date: 20070426
  Transmission Date: 20071010
  Serious: Yes (Death)
  Sender: FDA-Public Use
  Company Number: 155859ISR

PATIENT
  Age: 17 Year
  Sex: Female

DRUGS (2)
  1. AMITRIPTYLINE HCL [Suspect]
  2. PAROXETINE [Suspect]

REACTIONS (1)
  - COMPLETED SUICIDE [None]
